FAERS Safety Report 19765740 (Version 3)
Quarter: 2021Q4

REPORT INFORMATION
  Report Type: Spontaneous
  Country: PK (occurrence: PK)
  Receive Date: 20210831
  Receipt Date: 20211012
  Transmission Date: 20220303
  Serious: Yes (Death, Other)
  Sender: FDA-Public Use
  Company Number: PK-NOVOPROD-840448

PATIENT
  Age: 62 Year
  Sex: Female
  Weight: 65 kg

DRUGS (1)
  1. RYZODEG 70/30 [Suspect]
     Active Substance: INSULIN ASPART\INSULIN DEGLUDEC
     Indication: Type 2 diabetes mellitus
     Dosage: 16 IU, QD
     Route: 058
     Dates: start: 20190124, end: 20210604

REACTIONS (5)
  - Femur fracture [Fatal]
  - Hypertension [Fatal]
  - Blood creatinine increased [Fatal]
  - Haemoglobin decreased [Fatal]
  - Diabetes mellitus inadequate control [Unknown]
